FAERS Safety Report 12834942 (Version 2)
Quarter: 2018Q4

REPORT INFORMATION
  Report Type: Report from Study
  Country: BR (occurrence: BR)
  Receive Date: 20161010
  Receipt Date: 20181003
  Transmission Date: 20190204
  Serious: Yes (Death, Life-Threatening, Hospitalization)
  Sender: FDA-Public Use
  Company Number: BR-B.I. PHARMACEUTICALS,INC./RIDGEFIELD-2015-BI-24275BI

PATIENT
  Age: 76 Year
  Sex: Male
  Weight: 67.6 kg

DRUGS (7)
  1. SIMVASTATIN. [Concomitant]
     Active Substance: SIMVASTATIN
     Indication: DYSLIPIDAEMIA
     Dosage: DOSE PER APPLICATION AND DAILY DOSE: 20
     Route: 048
     Dates: start: 2005, end: 201506
  2. METFORMIN [Concomitant]
     Active Substance: METFORMIN HYDROCHLORIDE
     Indication: DIABETES MELLITUS
     Dosage: DOSE PER APPLICATION AND DAILY DOSE: 1000
     Route: 048
     Dates: start: 20130612, end: 201506
  3. BI 1356 [Suspect]
     Active Substance: LINAGLIPTIN
     Indication: TYPE 2 DIABETES MELLITUS
     Route: 048
     Dates: start: 20120711, end: 201506
  4. FUROSEMIDEFUROSEMIDE [Concomitant]
     Indication: HYPERTENSION
     Dosage: DOSE PER APPLICATION AND DAILY DOSE: 40
     Route: 048
     Dates: start: 2010, end: 201506
  5. PIOGLITAZONE. [Concomitant]
     Active Substance: PIOGLITAZONE
     Indication: DIABETES MELLITUS
     Dosage: DOSE PER APPLICATION AND DAILY DOSE: 45
     Route: 048
     Dates: start: 20150105, end: 201506
  6. LOSARTAN. [Concomitant]
     Active Substance: LOSARTAN
     Indication: HYPERTENSION
     Dosage: DOSE PER APPLICATION AND DAILY DOSE: 100
     Route: 048
     Dates: start: 20120625, end: 201506
  7. ACETYLSALICYLIC ACID [Concomitant]
     Active Substance: ASPIRIN
     Indication: ISCHAEMIC HEART DISEASE PROPHYLAXIS
     Dosage: DOSE PER APPLICATION AND DAILY DOSE: 100
     Route: 048
     Dates: start: 2005, end: 201506

REACTIONS (3)
  - Pneumonia [Recovered/Resolved]
  - Pleural effusion [Recovered/Resolved]
  - Lung neoplasm malignant [Fatal]

NARRATIVE: CASE EVENT DATE: 201501
